FAERS Safety Report 4590375-5 (Version None)
Quarter: 2005Q1

REPORT INFORMATION
  Report Type: 
  Country: None (occurrence: None)
  Receive Date: 20050217
  Receipt Date: 20050204
  Transmission Date: 20050727
  Serious: Yes (Other)
  Sender: FDA-Public Use
  Company Number: 2005025542

PATIENT
  Age: 68 Year
  Sex: Male
  Weight: 73.4827 kg

DRUGS (3)
  1. CELEBREX [Suspect]
     Indication: BACK INJURY
     Dosage: 200 MG (200 MG, 1 IN 1 D), ORAL
     Route: 048
     Dates: start: 20040901, end: 20050127
  2. SERENOA REPENS (SERENOA REPENS) [Concomitant]
  3. VITAMINS (VITAMINS) [Concomitant]

REACTIONS (2)
  - BLOOD PRESSURE INCREASED [None]
  - SHOULDER ARTHROPLASTY [None]
